FAERS Safety Report 6228491-4 (Version None)
Quarter: 2009Q2

REPORT INFORMATION
  Report Type: 
  Country: None (occurrence: None)
  Receive Date: 20090612
  Receipt Date: 20090605
  Transmission Date: 20091009
  Serious: Yes (Hospitalization, Other)
  Sender: FDA-Public Use
  Company Number: US-ELI_LILLY_AND_COMPANY-US200906001785

PATIENT
  Sex: Female

DRUGS (10)
  1. FORTEO [Suspect]
     Dosage: TOOK 3 INJECTIONS
     Dates: start: 20090401, end: 20090401
  2. FORTEO [Suspect]
     Dosage: UNK, UNK
     Dates: start: 20090101, end: 20090522
  3. FORTEO [Suspect]
     Dates: start: 20090603
  4. VIVELLE-DOT [Concomitant]
  5. RANITIDINE [Concomitant]
  6. ZITHROMYCIN [Concomitant]
  7. RIFAMPIN [Concomitant]
  8. ETAMBUTOL [Concomitant]
  9. FOLIC ACID [Concomitant]
  10. METHOTREXATE [Concomitant]

REACTIONS (11)
  - ASTHENIA [None]
  - CHEST DISCOMFORT [None]
  - CHEST PAIN [None]
  - DYSPNOEA [None]
  - HEADACHE [None]
  - HYPOAESTHESIA [None]
  - INVESTIGATION [None]
  - MALAISE [None]
  - RESPIRATION ABNORMAL [None]
  - SURGERY [None]
  - TREMOR [None]
